FAERS Safety Report 8535683 (Version 20)
Quarter: 2016Q1

REPORT INFORMATION
  Report Type: Report from Study
  Country: CA (occurrence: CA)
  Receive Date: 20120430
  Receipt Date: 20160329
  Transmission Date: 20160526
  Serious: Yes (Hospitalization)
  Sender: FDA-Public Use
  Company Number: PHHY2012CA034017

PATIENT
  Age: 76 Year
  Sex: Female

DRUGS (18)
  1. RANITIDINE [Concomitant]
     Active Substance: RANITIDINE\RANITIDINE HYDROCHLORIDE
     Indication: PRODUCT USED FOR UNKNOWN INDICATION
     Dosage: UNK
     Route: 048
  2. TIMOLOL. [Concomitant]
     Active Substance: TIMOLOL
     Indication: GLAUCOMA
     Dosage: UNK
     Route: 065
  3. EXJADE [Suspect]
     Active Substance: DEFERASIROX
     Dosage: 1 DF, QD
     Route: 048
     Dates: start: 20131013
  4. EXJADE [Suspect]
     Active Substance: DEFERASIROX
     Dosage: 1000 MG, QD
     Route: 048
  5. EXJADE [Suspect]
     Active Substance: DEFERASIROX
     Dosage: 1000 MG, QD
     Route: 048
     Dates: start: 20150715
  6. AMOXICILLIN. [Concomitant]
     Active Substance: AMOXICILLIN
     Indication: PRODUCT USED FOR UNKNOWN INDICATION
     Dosage: (1 HOUR PRIOR TO GO TO THE DENTIST)
     Route: 065
  7. EXJADE [Suspect]
     Active Substance: DEFERASIROX
     Dosage: 500 MG, QD
     Route: 048
  8. SLOW K [Concomitant]
     Active Substance: POTASSIUM CHLORIDE
     Indication: PRODUCT USED FOR UNKNOWN INDICATION
     Route: 065
  9. EXJADE [Suspect]
     Active Substance: DEFERASIROX
     Dosage: 1000 MG, QD
     Route: 048
  10. EXJADE [Suspect]
     Active Substance: DEFERASIROX
     Dosage: 500 MG, TID (3 TABLETS DAILY)
     Route: 048
     Dates: start: 201305, end: 20131001
  11. EXJADE [Suspect]
     Active Substance: DEFERASIROX
     Indication: MYELODYSPLASTIC SYNDROME
     Dosage: UNK
     Route: 048
     Dates: start: 20110125
  12. EXJADE [Suspect]
     Active Substance: DEFERASIROX
     Indication: APLASTIC ANAEMIA
     Dosage: 2 DF, QD
     Route: 048
  13. EXJADE [Suspect]
     Active Substance: DEFERASIROX
     Dosage: 500 MG, QD
     Route: 048
     Dates: start: 201101
  14. EXJADE [Suspect]
     Active Substance: DEFERASIROX
     Dosage: 8500 MG, (1500 MG QD ON MONDAY, WEDNESDAY AND FRIDAY AND 1000 MG QD OTHER DAYS)
     Route: 048
     Dates: start: 20150216
  15. EXJADE [Suspect]
     Active Substance: DEFERASIROX
     Dosage: 500 MG, QD
     Route: 048
  16. VITAMIN D [Concomitant]
     Active Substance: CHOLECALCIFEROL
     Indication: PRODUCT USED FOR UNKNOWN INDICATION
     Dosage: UNK UKN, UNK
     Route: 065
  17. EXJADE [Suspect]
     Active Substance: DEFERASIROX
     Dosage: 2 DF, QD
     Route: 048
     Dates: start: 20131026
  18. EXJADE [Suspect]
     Active Substance: DEFERASIROX
     Dosage: 1500 MG, QD
     Route: 065

REACTIONS (24)
  - Muscular weakness [Not Recovered/Not Resolved]
  - Fatigue [Unknown]
  - Infection [Unknown]
  - Blood creatinine increased [Recovered/Resolved]
  - Dizziness [Unknown]
  - Paraesthesia [Not Recovered/Not Resolved]
  - Vomiting [Recovered/Resolved]
  - Clostridium difficile infection [Unknown]
  - Movement disorder [Unknown]
  - Nasopharyngitis [Unknown]
  - Feeling abnormal [Unknown]
  - Head discomfort [Unknown]
  - Dehydration [Unknown]
  - White blood cell count decreased [Unknown]
  - Gastric disorder [Unknown]
  - Serum ferritin increased [Recovered/Resolved]
  - Urticaria [Unknown]
  - Oral disorder [Not Recovered/Not Resolved]
  - Vertigo [Unknown]
  - Pyrexia [Recovered/Resolved]
  - Diarrhoea [Recovered/Resolved]
  - Liver function test increased [Recovered/Resolved]
  - Stomatitis [Recovered/Resolved]
  - Serum ferritin increased [Unknown]

NARRATIVE: CASE EVENT DATE: 201108
